FAERS Safety Report 12871277 (Version 2)
Quarter: 2016Q4

REPORT INFORMATION
  Report Type: Spontaneous
  Country: PE (occurrence: PE)
  Receive Date: 20161020
  Receipt Date: 20161103
  Transmission Date: 20170207
  Serious: Yes (Hospitalization)
  Sender: FDA-Public Use
  Company Number: PHHY2016PE143753

PATIENT
  Age: 4 Year
  Sex: Female

DRUGS (2)
  1. CARBAMAZEPINE. [Suspect]
     Active Substance: CARBAMAZEPINE
     Dosage: 15 MG/KG, QD
     Route: 065
  2. CARBAMAZEPINE. [Suspect]
     Active Substance: CARBAMAZEPINE
     Indication: GENERALISED TONIC-CLONIC SEIZURE
     Dosage: 10 MG/KG, QD
     Route: 065

REACTIONS (3)
  - Therapy non-responder [Unknown]
  - Generalised tonic-clonic seizure [Recovered/Resolved]
  - Complex partial seizures [Recovered/Resolved]
